FAERS Safety Report 6219162-9 (Version None)
Quarter: 2009Q2

REPORT INFORMATION
  Report Type: 
  Country: None (occurrence: None)
  Receive Date: 20090609
  Receipt Date: 20090528
  Transmission Date: 20091009
  Serious: Yes (Hospitalization, Other)
  Sender: FDA-Public Use
  Company Number: JP-JNJFOC-20090502161

PATIENT
  Sex: Male
  Weight: 61 kg

DRUGS (8)
  1. REMICADE [Suspect]
     Indication: RHEUMATOID ARTHRITIS
     Route: 042
  2. METHOTREXATE [Suspect]
     Indication: RHEUMATOID ARTHRITIS
     Dosage: PATIENT ON DRUG FOR 5 YEARS
     Route: 048
  3. PREDNISOLONE [Concomitant]
     Indication: RHEUMATOID ARTHRITIS
     Route: 048
  4. HARNAL [Concomitant]
     Route: 048
  5. MUCOSOLVAN [Concomitant]
     Route: 048
  6. PARIET [Concomitant]
     Route: 048
  7. FOLIAMIN [Concomitant]
     Route: 048
  8. LOXONIN [Concomitant]
     Route: 048

REACTIONS (1)
  - B-CELL LYMPHOMA [None]
